FAERS Safety Report 25709978 (Version 1)
Quarter: 2025Q3

REPORT INFORMATION
  Report Type: Other
  Country: US (occurrence: US)
  Receive Date: 20250821
  Receipt Date: 20250821
  Transmission Date: 20251021
  Serious: Yes (Other)
  Sender: ANI
  Company Number: US-ANIPHARMA-024137

PATIENT
  Age: 69 Year
  Sex: Female

DRUGS (2)
  1. LITHIUM [Suspect]
     Active Substance: LITHIUM
     Indication: Bipolar I disorder
  2. LITHIUM [Suspect]
     Active Substance: LITHIUM
     Indication: Bipolar I disorder

REACTIONS (4)
  - Renal impairment [Recovering/Resolving]
  - Psychotic symptom [Recovering/Resolving]
  - Mania [Recovering/Resolving]
  - Toxicity to various agents [Recovering/Resolving]
